FAERS Safety Report 21628639 (Version 4)
Quarter: 2023Q4

REPORT INFORMATION
  Report Type: Spontaneous
  Country: US (occurrence: US)
  Receive Date: 20221122
  Receipt Date: 20231017
  Transmission Date: 20240110
  Serious: Yes (Other)
  Sender: FDA-Public Use
  Company Number: US-BEH-2022152025

PATIENT
  Sex: Female

DRUGS (54)
  1. HIZENTRA [Suspect]
     Active Substance: HUMAN IMMUNOGLOBULIN G
     Indication: Immunodeficiency
     Dosage: 30 GRAM, QOW
     Route: 058
     Dates: start: 20211210
  2. AMOXICILLIN [Concomitant]
     Active Substance: AMOXICILLIN
  3. AZELASTINE [Concomitant]
     Active Substance: AZELASTINE
  4. AZITHROMYCIN [Concomitant]
     Active Substance: AZITHROMYCIN
  5. BENADRYL [Concomitant]
     Active Substance: DIPHENHYDRAMINE HYDROCHLORIDE
  6. BOTOX [Concomitant]
     Active Substance: ONABOTULINUMTOXINA
  7. BOTOX [Concomitant]
     Active Substance: ONABOTULINUMTOXINA
  8. CEFUROXIME [Concomitant]
     Active Substance: CEFUROXIME
  9. CIPRODEX [Concomitant]
     Active Substance: CIPROFLOXACIN HYDROCHLORIDE\DEXAMETHASONE
  10. CIPROFLOXACIN [Concomitant]
     Active Substance: CIPROFLOXACIN
  11. CLARITHROMYCIN [Concomitant]
     Active Substance: CLARITHROMYCIN
  12. CLONAZEPAM [Concomitant]
     Active Substance: CLONAZEPAM
  13. CYCLOBENZAPRINE [Concomitant]
     Active Substance: CYCLOBENZAPRINE
  14. CYCLOBENZAPRINE [Concomitant]
     Active Substance: CYCLOBENZAPRINE
  15. DESONIDE [Concomitant]
     Active Substance: DESONIDE
  16. DEXAMETHASONE [Concomitant]
     Active Substance: DEXAMETHASONE
  17. EMLA [Concomitant]
     Active Substance: LIDOCAINE\PRILOCAINE
  18. EPINEPHRINE [Concomitant]
     Active Substance: EPINEPHRINE
  19. FLUCELVAX NOS [Concomitant]
     Active Substance: INFLUENZA A VIRUS A/BRISBANE/10/2010 (H1N1) ANTIGEN (MDCK CELL DERIVED, PROPIOLACTONE INACTIVATED)\I
  20. FLUCONAZOLE [Concomitant]
     Active Substance: FLUCONAZOLE
  21. FLUOCINONIDE [Concomitant]
     Active Substance: FLUOCINONIDE
  22. FUROSEMIDE [Concomitant]
     Active Substance: FUROSEMIDE
  23. HYDROCORTISONE [Concomitant]
     Active Substance: HYDROCORTISONE
  24. HYQVIA [Concomitant]
     Active Substance: HUMAN IMMUNOGLOBULIN G\HYALURONIDASE (HUMAN RECOMBINANT)
  25. LEVOTHYROXINE [Concomitant]
     Active Substance: LEVOTHYROXINE
  26. LIDOCAINE\PRILOCAINE [Concomitant]
     Active Substance: LIDOCAINE\PRILOCAINE
  27. LIDOCAINE\PRILOCAINE [Concomitant]
     Active Substance: LIDOCAINE\PRILOCAINE
  28. LOSARTAN POTASSIUM [Concomitant]
     Active Substance: LOSARTAN POTASSIUM
  29. LOSARTAN POTASSIUM [Concomitant]
     Active Substance: LOSARTAN POTASSIUM
  30. LOTEMAX [Concomitant]
     Active Substance: LOTEPREDNOL ETABONATE
  31. METHYLPREDNISOLONE [Concomitant]
     Active Substance: METHYLPREDNISOLONE
  32. METOPROLOL SUCCINATE [Concomitant]
     Active Substance: METOPROLOL SUCCINATE
  33. MODERNA COVID-19 VACCINE [Concomitant]
     Active Substance: ELASOMERAN
  34. NORTRIPTYLINE [Concomitant]
     Active Substance: NORTRIPTYLINE
  35. NP THYROID [Concomitant]
     Active Substance: LEVOTHYROXINE\LIOTHYRONINE
  36. NP THYROID [Concomitant]
     Active Substance: LEVOTHYROXINE\LIOTHYRONINE
  37. NP THYROID [Concomitant]
     Active Substance: LEVOTHYROXINE\LIOTHYRONINE
  38. OFLOXACIN [Concomitant]
     Active Substance: OFLOXACIN
  39. ONDANSETRON [Concomitant]
     Active Substance: ONDANSETRON
  40. PANTOPRAZOLE [Concomitant]
     Active Substance: PANTOPRAZOLE
  41. PENICILLINE VK [Concomitant]
  42. PIMECROLIMUS [Concomitant]
     Active Substance: PIMECROLIMUS
  43. POTASSIUM CHLORIDE [Concomitant]
     Active Substance: POTASSIUM CHLORIDE
  44. PROMETHAZINE [Concomitant]
     Active Substance: PROMETHAZINE HYDROCHLORIDE
  45. RESTASIS [Concomitant]
     Active Substance: CYCLOSPORINE
  46. RIZATRIPTAN [Concomitant]
     Active Substance: RIZATRIPTAN
  47. TACROLIMUS [Concomitant]
     Active Substance: TACROLIMUS
  48. TRETINOIN [Concomitant]
     Active Substance: TRETINOIN
  49. TRETINOIN [Concomitant]
     Active Substance: TRETINOIN
  50. TYLENOL [Concomitant]
     Active Substance: ACETAMINOPHEN
  51. VENLAFAXINE [Concomitant]
     Active Substance: VENLAFAXINE HYDROCHLORIDE
  52. VITAMIN D NOS [Concomitant]
     Active Substance: VITAMIN D NOS
  53. XELJANZ XR [Concomitant]
     Active Substance: TOFACITINIB CITRATE
  54. XELJANZ XR [Concomitant]
     Active Substance: TOFACITINIB CITRATE

REACTIONS (8)
  - Drug ineffective [Not Recovered/Not Resolved]
  - Sinusitis [Not Recovered/Not Resolved]
  - Infection [Not Recovered/Not Resolved]
  - Discomfort [Not Recovered/Not Resolved]
  - Sinusitis [Not Recovered/Not Resolved]
  - Pain [Not Recovered/Not Resolved]
  - Fluid retention [Not Recovered/Not Resolved]
  - Weight fluctuation [Not Recovered/Not Resolved]
